FAERS Safety Report 23050624 (Version 2)
Quarter: 2024Q3

REPORT INFORMATION
  Report Type: Spontaneous
  Country: GB (occurrence: GB)
  Receive Date: 20231010
  Receipt Date: 20240703
  Transmission Date: 20241017
  Serious: Yes (Hospitalization)
  Sender: RANBAXY
  Company Number: GB-SUN PHARMACEUTICAL INDUSTRIES LTD-2023RR-411834

PATIENT
  Age: 61 Year
  Sex: Male

DRUGS (7)
  1. OLANZAPINE [Suspect]
     Active Substance: OLANZAPINE
     Indication: Product used for unknown indication
     Dosage: 10 MILLIGRAM, BID
     Route: 065
  2. ALBUTEROL [Concomitant]
     Active Substance: ALBUTEROL
     Indication: Product used for unknown indication
     Dosage: 200 MICROGRAM, PRN
     Route: 055
  3. GLYCOPYRRONIUM [Concomitant]
     Active Substance: GLYCOPYRRONIUM
     Indication: Product used for unknown indication
     Dosage: 44 MILLIGRAM, DAILY, MORNING
     Route: 055
  4. ATORVASTATIN [Concomitant]
     Active Substance: ATORVASTATIN
     Indication: Product used for unknown indication
     Dosage: 1 DOSAGE FORM, DAILY, NIGHT
     Route: 065
  5. VALPROATE SODIUM [Concomitant]
     Active Substance: VALPROATE SODIUM
     Indication: Product used for unknown indication
     Dosage: 1000 MILLIGRAM, BID
     Route: 065
  6. HALOPERIDOL [Concomitant]
     Active Substance: HALOPERIDOL
     Indication: Product used for unknown indication
     Dosage: 10 MILLIGRAM, BID, 10MG/5ML(REPLACING CLOZAPINE WHICH WAS ORIGINALLY HELD)
     Route: 048
  7. LEVETIRACETAM [Concomitant]
     Active Substance: LEVETIRACETAM
     Indication: Product used for unknown indication
     Dosage: 1.5 GRAM, 2 DOSE, (STARTED DUE TO SEIZURE)
     Route: 065

REACTIONS (2)
  - Generalised tonic-clonic seizure [Recovered/Resolved]
  - Ileus [Unknown]
